FAERS Safety Report 18201271 (Version 1)
Quarter: 2020Q3

REPORT INFORMATION
  Report Type: Spontaneous
  Country: US (occurrence: US)
  Receive Date: 20200827
  Receipt Date: 20200827
  Transmission Date: 20201103
  Serious: Yes (Hospitalization)
  Sender: FDA-Public Use
  Company Number: US-AMGEN-USASP2020137126

PATIENT
  Age: 54 Year
  Sex: Female
  Weight: 54.69 kg

DRUGS (20)
  1. KYPROLIS [Suspect]
     Active Substance: CARFILZOMIB
     Dosage: 27 MILLIGRAM/SQ. METER, Q4WK, C1 WK2, WEEKLY D1,2X3
     Route: 042
     Dates: start: 20171202, end: 20180125
  2. REVLIMID [Suspect]
     Active Substance: LENALIDOMIDE
     Indication: PLASMA CELL MYELOMA
     Dosage: 25 MILLIGRAM, QD (ONCE DAILY) FOR 14 DAYS OF EVERY 21 DAY CYCLE
     Route: 048
     Dates: start: 20130218, end: 20130510
  3. REVLIMID [Suspect]
     Active Substance: LENALIDOMIDE
     Dosage: 10 MILLIGRAM, QD FOR 21 DAYS OF EVERY 28 DAY CYCLE
     Route: 048
     Dates: start: 20160419, end: 20160728
  4. DECADRON [Suspect]
     Active Substance: DEXAMETHASONE
     Dosage: 10 MILLIGRAM, 6 I 28 D
     Route: 048
     Dates: start: 20170302, end: 20170608
  5. DARATUMUMAB [Suspect]
     Active Substance: DARATUMUMAB
     Indication: PLASMA CELL MYELOMA
     Dosage: 900 MILLIGRAM
     Route: 042
  6. DARATUMUMAB [Suspect]
     Active Substance: DARATUMUMAB
     Dosage: 16 MILLIGRAM/KILOGRAM, Q2WK, (1 IN 2 WK)
     Route: 042
     Dates: start: 20180726, end: 20181213
  7. KYPROLIS [Suspect]
     Active Substance: CARFILZOMIB
     Dosage: 20 MILLIGRAM/SQ. METER, CYCLE 1 DAY 1,2
     Route: 042
     Dates: start: 20171130, end: 20171201
  8. KYPROLIS [Suspect]
     Active Substance: CARFILZOMIB
     Dosage: 27 MILLIGRAM/SQ. METER, C1 D8, 9, 15, 16 THEN C2?12, D1,2,8,9,15,16
     Route: 042
     Dates: start: 20160825, end: 20170302
  9. REVLIMID [Suspect]
     Active Substance: LENALIDOMIDE
     Dosage: 10 MILLIGRAM, QD FOR 21 DAYS OF EVERY 28 DAY CYCLE
     Route: 048
     Dates: start: 20140214, end: 20150724
  10. DECADRON [Suspect]
     Active Substance: DEXAMETHASONE
     Indication: PLASMA CELL MYELOMA
     Dosage: 20 MILLIGRAM DAYS 1, 2, 4, 5, 8, 9, 11, 12 EVERY 21 DAYS
     Route: 048
     Dates: start: 20130218, end: 20130510
  11. DECADRON [Suspect]
     Active Substance: DEXAMETHASONE
     Dosage: 20 MILLIGRAM, 6 IN 28 D
     Route: 048
     Dates: start: 20160811, end: 20170201
  12. DECADRON [Suspect]
     Active Substance: DEXAMETHASONE
     Dosage: 10 MILLIGRAM, 4 IN28 D
     Route: 048
     Dates: start: 20170202, end: 20170301
  13. KYPROLIS [Suspect]
     Active Substance: CARFILZOMIB
     Dosage: 27 MILLIGRAM/SQ. METER, 4 IN 28 D
     Route: 042
     Dates: start: 20170302, end: 20170608
  14. DECADRON [Suspect]
     Active Substance: DEXAMETHASONE
     Dosage: 4 MILLIGRAM
     Route: 042
     Dates: start: 20171130, end: 20180125
  15. MELPHALAN. [Suspect]
     Active Substance: MELPHALAN
     Indication: PLASMA CELL MYELOMA
     Dosage: 200 MILLIGRAM/SQ. METER ONE DOSE
     Route: 042
     Dates: start: 20130708, end: 20130708
  16. KYPROLIS [Suspect]
     Active Substance: CARFILZOMIB
     Indication: PLASMA CELL MYELOMA
     Dosage: 20 MILLIGRAM/SQ. METER, DAY 1 AND 2
     Route: 042
  17. DARATUMUMAB [Suspect]
     Active Substance: DARATUMUMAB
     Dosage: 16 MILLIGRAM/KILOGRAM, QWK (1 IN 1 WK)
     Route: 042
     Dates: start: 20180518, end: 20180726
  18. BORTEZOMIB. [Suspect]
     Active Substance: BORTEZOMIB
     Indication: PLASMA CELL MYELOMA
     Dosage: 1.3 MILLIGRAM/SQ. METER, 4 IN 21 D
     Route: 058
     Dates: start: 20130218, end: 20130610
  19. REVLIMID [Suspect]
     Active Substance: LENALIDOMIDE
     Dosage: 25 MILLIGRAM, QD (ONCE DAILY) FOR 21 DAYS OF EVERY 28 DAY CYCLE
     Route: 048
     Dates: start: 20160811, end: 20170608
  20. DARATUMUMAB [Suspect]
     Active Substance: DARATUMUMAB
     Dosage: 16 MILLIGRAM/KILOGRAM, Q4WK (1 IN 4 WK)
     Route: 042
     Dates: start: 20181213

REACTIONS (3)
  - Chest pain [Unknown]
  - Anaemia [Recovered/Resolved]
  - Dyspnoea [Unknown]

NARRATIVE: CASE EVENT DATE: 20200505
